FAERS Safety Report 16699519 (Version 10)
Quarter: 2024Q2

REPORT INFORMATION
  Report Type: Spontaneous
  Country: US (occurrence: US)
  Receive Date: 20190813
  Receipt Date: 20240520
  Transmission Date: 20240716
  Serious: Yes (Hospitalization, Other)
  Sender: FDA-Public Use
  Company Number: US-PFIZER INC-2019211729

PATIENT
  Age: 58 Year
  Sex: Female
  Weight: 54.88 kg

DRUGS (2)
  1. PREMARIN [Suspect]
     Active Substance: ESTROGENS, CONJUGATED
     Indication: Vulvovaginal dryness
     Dosage: 1 G,  (0.625MG/GM; APPLY 1 GM BY VAGINA THREE TIMES WEEKLY)
     Route: 067
     Dates: start: 2017
  2. PREMARIN [Suspect]
     Active Substance: ESTROGENS, CONJUGATED
     Dosage: (APPLY 3 TIMES A WEEK)

REACTIONS (9)
  - Prinzmetal angina [Not Recovered/Not Resolved]
  - Infection [Unknown]
  - Pyrexia [Unknown]
  - Urinary tract infection [Unknown]
  - Off label use [Unknown]
  - Expired product administered [Unknown]
  - Anxiety [Unknown]
  - Illness [Unknown]
  - Frustration tolerance decreased [Unknown]

NARRATIVE: CASE EVENT DATE: 20180101
